FAERS Safety Report 4941195-0 (Version None)
Quarter: 2006Q1

REPORT INFORMATION
  Report Type: 
  Country: None (occurrence: None)
  Receive Date: 20060310
  Receipt Date: 20060310
  Transmission Date: 20060701
  Serious: Yes (Hospitalization)
  Sender: FDA-Public Use
  Company Number: None

PATIENT
  Age: 43 Year
  Sex: Male
  Weight: 72.5755 kg

DRUGS (2)
  1. BEVACIZUMAB GENENTECH [Suspect]
     Dosage: 10 MG/KG IV
     Route: 042
     Dates: start: 20060109, end: 20060220
  2. GEMCITABINE [Suspect]
     Dosage: 1000 MG/M2 IV
     Route: 042
     Dates: start: 20060109, end: 20060227

REACTIONS (12)
  - ABDOMINAL PAIN UPPER [None]
  - BLOOD BILIRUBIN INCREASED [None]
  - CHOLANGITIS [None]
  - DECREASED APPETITE [None]
  - DEHYDRATION [None]
  - DIARRHOEA [None]
  - FAILURE TO THRIVE [None]
  - FATIGUE [None]
  - HEPATIC ENZYME INCREASED [None]
  - NAUSEA [None]
  - PYREXIA [None]
  - STENT OCCLUSION [None]
